FAERS Safety Report 4613127-6 (Version None)
Quarter: 2005Q1

REPORT INFORMATION
  Report Type: 
  Country: None (occurrence: None)
  Receive Date: 20050318
  Receipt Date: 20050310
  Transmission Date: 20050727
  Serious: Yes (Death)
  Sender: FDA-Public Use
  Company Number: TH-MERCK-0503THA00008

PATIENT

DRUGS (2)
  1. CANCIDAS [Suspect]
     Route: 065
  2. CYCLOSPORINE [Concomitant]
     Route: 065

REACTIONS (2)
  - DEATH [None]
  - HEPATIC ENZYME INCREASED [None]
